FAERS Safety Report 6460563-1 (Version None)
Quarter: 2009Q4

REPORT INFORMATION
  Report Type: 
  Country: None (occurrence: None)
  Receive Date: 20091130
  Receipt Date: 20091120
  Transmission Date: 20100525
  Serious: Yes (Other)
  Sender: FDA-Public Use
  Company Number: FR-AMGEN-QUU350722

PATIENT
  Sex: Male

DRUGS (9)
  1. NEUPOGEN [Suspect]
     Indication: DRUG USE FOR UNKNOWN INDICATION
     Route: 042
     Dates: start: 20090514, end: 20090523
  2. SPASFON [Suspect]
     Route: 042
     Dates: start: 20090517, end: 20090518
  3. IDARAC [Suspect]
     Dates: start: 20090514, end: 20090516
  4. CERUBIDINE [Suspect]
     Route: 042
     Dates: start: 20090514, end: 20090516
  5. PRIMPERAN TAB [Concomitant]
     Route: 042
     Dates: start: 20090515, end: 20090525
  6. ZOPHREN [Concomitant]
     Route: 042
     Dates: start: 20090514, end: 20090516
  7. CYTARABINE [Concomitant]
     Route: 042
     Dates: start: 20090514, end: 20090516
  8. ROCEPHIN [Concomitant]
     Route: 042
     Dates: start: 20090510
  9. UNSPECIFIED MEDICATION [Concomitant]
     Route: 048
     Dates: start: 20090514, end: 20090516

REACTIONS (3)
  - ANAPHYLACTOID REACTION [None]
  - CUTANEOUS VASCULITIS [None]
  - PURPURA [None]
